FAERS Safety Report 9720411 (Version 1)
Quarter: 2013Q4

REPORT INFORMATION
  Report Type: Spontaneous
  Country: BR (occurrence: BR)
  Receive Date: 20131129
  Receipt Date: 20131129
  Transmission Date: 20140711
  Serious: Yes (Death, Other)
  Sender: FDA-Public Use
  Company Number: BR-JNJFOC-20131116626

PATIENT
  Sex: Male
  Weight: 60 kg

DRUGS (1)
  1. REMINYL ER [Suspect]
     Indication: PRODUCT USED FOR UNKNOWN INDICATION
     Dosage: FOR MORE THAN TWO YEARS
     Route: 065

REACTIONS (4)
  - Death [Fatal]
  - Dementia Alzheimer^s type [Unknown]
  - Cardiac disorder [Unknown]
  - Renal disorder [Unknown]
